FAERS Safety Report 17919414 (Version 1)
Quarter: 2020Q2

REPORT INFORMATION
  Report Type: Spontaneous
  Country: US (occurrence: US)
  Receive Date: 20200619
  Receipt Date: 20200619
  Transmission Date: 20200714
  Serious: No
  Sender: FDA-Public Use
  Company Number: US-CATALYST PHARMACEUTICALS, INC-2020CAT00152

PATIENT
  Age: 60 Year
  Sex: Male
  Weight: 90.7 kg

DRUGS (8)
  1. FIRDAPSE [Suspect]
     Active Substance: AMIFAMPRIDINE
     Indication: MYASTHENIC SYNDROME
     Dosage: 10 MG, 4X/DAY
     Route: 048
     Dates: start: 20190918
  2. ATORVASTATIN [Concomitant]
     Active Substance: ATORVASTATIN
  3. NORTRIPTYLINE [Concomitant]
     Active Substance: NORTRIPTYLINE
  4. BABY ASPIRIN [Concomitant]
     Active Substance: ASPIRIN
  5. FIRDAPSE [Suspect]
     Active Substance: AMIFAMPRIDINE
     Dosage: 20 MG, 4X/DAY
     Route: 048
     Dates: end: 202003
  6. LISINOPRIL. [Concomitant]
     Active Substance: LISINOPRIL
  7. EZETIMIBE. [Concomitant]
     Active Substance: EZETIMIBE
  8. MULTIVITAMIN [Concomitant]
     Active Substance: VITAMINS

REACTIONS (4)
  - Hypoaesthesia oral [Recovered/Resolved]
  - Hypoaesthesia [Recovered/Resolved]
  - Paraesthesia oral [Recovered/Resolved]
  - Paraesthesia [Recovered/Resolved]

NARRATIVE: CASE EVENT DATE: 20190918
